FAERS Safety Report 23394255 (Version 5)
Quarter: 2025Q2

REPORT INFORMATION
  Report Type: Report from Study
  Country: AU (occurrence: AU)
  Receive Date: 20240111
  Receipt Date: 20250430
  Transmission Date: 20250716
  Serious: Yes (Other)
  Sender: NOVARTIS
  Company Number: AU-002147023-NVSC2024AU001694

PATIENT
  Age: 55 Year
  Sex: Female

DRUGS (1)
  1. LEQVIO [Suspect]
     Active Substance: INCLISIRAN SODIUM
     Indication: Hypercholesterolaemia
     Route: 058
     Dates: start: 20231121

REACTIONS (11)
  - Depression [Recovered/Resolved]
  - Nausea [Unknown]
  - Dizziness [Recovered/Resolved]
  - Abdominal pain upper [Not Recovered/Not Resolved]
  - Injection site rash [Not Recovered/Not Resolved]
  - Hypersensitivity [Unknown]
  - Injection site bruising [Not Recovered/Not Resolved]
  - Anxiety [Recovered/Resolved]
  - Peripheral swelling [Unknown]
  - Decreased appetite [Unknown]
  - Injection site pain [Unknown]

NARRATIVE: CASE EVENT DATE: 20231225
